FAERS Safety Report 7276164-1 (Version None)
Quarter: 2011Q1

REPORT INFORMATION
  Report Type: 
  Country: None (occurrence: None)
  Receive Date: 20110204
  Receipt Date: 20110128
  Transmission Date: 20110831
  Serious: Yes (Hospitalization)
  Sender: FDA-Public Use
  Company Number: PHHY2011US07629

PATIENT
  Sex: Male

DRUGS (9)
  1. SYMBICORT [Concomitant]
     Dosage: 40 MG, UNK
  2. ALBUTEROL [Concomitant]
     Dosage: BID
  3. VITAMIN D [Concomitant]
     Indication: VITAMIN D DEFICIENCY
  4. PRILOSEC [Concomitant]
  5. TOBI [Suspect]
     Indication: CYSTIC FIBROSIS
     Dosage: BID EVERY OTHER 28 DAYS
  6. PREDNISONE [Concomitant]
  7. BACTRIM [Concomitant]
     Route: 048
  8. PULMOZYME [Concomitant]
  9. DIGESTIVE ENZYMES [Concomitant]

REACTIONS (2)
  - STAPHYLOCOCCAL INFECTION [None]
  - INFECTIVE PULMONARY EXACERBATION OF CYSTIC FIBROSIS [None]
